FAERS Safety Report 7098631-6 (Version None)
Quarter: 2010Q4

REPORT INFORMATION
  Report Type: 
  Country: None (occurrence: None)
  Receive Date: 20101110
  Receipt Date: 20101110
  Transmission Date: 20110411
  Serious: Yes (Hospitalization)
  Sender: FDA-Public Use
  Company Number: None

PATIENT
  Sex: Female

DRUGS (1)
  1. IOPAMIDOL-370 [Suspect]
     Indication: ANGIOGRAM
     Dosage: 80 ML OTO IV ONE DOSE
     Route: 042

REACTIONS (4)
  - CHEST PAIN [None]
  - HEART RATE DECREASED [None]
  - LETHARGY [None]
  - PHARYNGEAL OEDEMA [None]
